FAERS Safety Report 9252677 (Version 1)
Quarter: 2013Q2

REPORT INFORMATION
  Report Type: Spontaneous
  Country: US (occurrence: US)
  Receive Date: 20130424
  Receipt Date: 20130424
  Transmission Date: 20140414
  Serious: Yes (Other)
  Sender: FDA-Public Use
  Company Number: US-GLAXOSMITHKLINE-B0884344A

PATIENT
  Age: 80 Year
  Sex: Female

DRUGS (2)
  1. OLUX [Suspect]
     Indication: PRODUCT USED FOR UNKNOWN INDICATION
     Route: 065
     Dates: start: 200809
  2. TARSUM SHAMPOO [Suspect]
     Indication: PSORIASIS
     Route: 065
     Dates: start: 200809

REACTIONS (4)
  - Dyskinesia [Unknown]
  - Malocclusion [Unknown]
  - Mastication disorder [Unknown]
  - Head discomfort [Unknown]
